FAERS Safety Report 9207157 (Version 2)
Quarter: 2013Q4

REPORT INFORMATION
  Report Type: Spontaneous
  Country: TR (occurrence: TR)
  Receive Date: 20130403
  Receipt Date: 20131227
  Transmission Date: 20140711
  Serious: Yes (Death, Other)
  Sender: FDA-Public Use
  Company Number: TR-VERTEX PHARMACEUTICALS INC.-2013-002882

PATIENT
  Age: 6 Decade
  Sex: Male

DRUGS (4)
  1. INCIVO [Suspect]
     Indication: CHRONIC HEPATITIS C
     Dosage: 750 MG, TID
     Dates: start: 20130125
  2. INCIVO [Suspect]
     Indication: HEPATITIS C
  3. RIBAVIRINE [Suspect]
     Indication: CHRONIC HEPATITIS C
     Dates: start: 20130125
  4. PEGINTERFERON ALFA 2B [Suspect]
     Indication: CHRONIC HEPATITIS C
     Dates: start: 20130125

REACTIONS (4)
  - Acute myocardial infarction [Fatal]
  - Echinococciasis [Unknown]
  - Rash [Not Recovered/Not Resolved]
  - Rectal haemorrhage [Not Recovered/Not Resolved]
